FAERS Safety Report 7015013-3 (Version None)
Quarter: 2010Q3

REPORT INFORMATION
  Report Type: 
  Country: None (occurrence: None)
  Receive Date: 20100927
  Receipt Date: 20091112
  Transmission Date: 20110219
  Serious: No
  Sender: FDA-Public Use
  Company Number: US-ASTRAZENECA-2009SE26251

PATIENT
  Age: 66 Year
  Sex: Female
  Weight: 68 kg

DRUGS (2)
  1. ARIMIDEX [Suspect]
     Route: 048
     Dates: start: 20040101, end: 20070301
  2. NEXIUM [Concomitant]
     Indication: GASTROOESOPHAGEAL REFLUX DISEASE

REACTIONS (4)
  - HOT FLUSH [None]
  - NAIL DISCOLOURATION [None]
  - PAIN [None]
  - PARAESTHESIA [None]
